FAERS Safety Report 5370953-6 (Version None)
Quarter: 2007Q2

REPORT INFORMATION
  Report Type: 
  Country: None (occurrence: None)
  Receive Date: 20070626
  Receipt Date: 20070614
  Transmission Date: 20071010
  Serious: Yes (Other)
  Sender: FDA-Public Use
  Company Number: US-PFIZER INC-2007001554

PATIENT
  Sex: Male
  Weight: 56.7 kg

DRUGS (8)
  1. CHANTIX [Suspect]
     Indication: SMOKING CESSATION THERAPY
  2. MIRTAZAPINE [Concomitant]
  3. TRILEPTAL [Concomitant]
  4. RISPERDAL [Concomitant]
  5. WELLBUTRIN [Concomitant]
  6. MONTELUKAST SODIUM [Concomitant]
  7. RANITIDINE [Concomitant]
  8. CLARITIN [Concomitant]

REACTIONS (6)
  - BALANCE DISORDER [None]
  - BLOOD PRESSURE DECREASED [None]
  - DIZZINESS [None]
  - HEART RATE INCREASED [None]
  - HYPOVOLAEMIA [None]
  - VASCULAR RESISTANCE SYSTEMIC DECREASED [None]
